FAERS Safety Report 18240534 (Version 1)
Quarter: 2020Q3

REPORT INFORMATION
  Report Type: Spontaneous
  Country: US (occurrence: US)
  Receive Date: 20200904
  Receipt Date: 20200904
  Transmission Date: 20201103
  Serious: No
  Sender: FDA-Public Use
  Company Number: None

PATIENT
  Age: 23 Year
  Sex: Female
  Weight: 67.5 kg

DRUGS (6)
  1. IC GABAPENTIN [Suspect]
     Active Substance: GABAPENTIN
     Indication: NEURALGIA
     Route: 048
  2. FLUTICASONE. [Concomitant]
     Active Substance: FLUTICASONE
  3. MULTIVITAMIN [Concomitant]
     Active Substance: VITAMINS
  4. IC GABAPENTIN [Suspect]
     Active Substance: GABAPENTIN
     Indication: HYPOAESTHESIA
     Route: 048
  5. GABAPENTIN. [Concomitant]
     Active Substance: GABAPENTIN
  6. PARAGARD T 380A [Concomitant]
     Active Substance: COPPER

REACTIONS (5)
  - Increased appetite [None]
  - Lack of satiety [None]
  - Hypophagia [None]
  - Hyperphagia [None]
  - Weight increased [None]
